FAERS Safety Report 8877705 (Version 4)
Quarter: 2013Q2

REPORT INFORMATION
  Report Type: Report from Study
  Country: US (occurrence: US)
  Receive Date: 20121024
  Receipt Date: 20130423
  Transmission Date: 20140414
  Serious: Yes (Other)
  Sender: FDA-Public Use
  Company Number: PHEH2012US020699

PATIENT
  Age: 44 Year
  Sex: Female
  Weight: 78.91 kg

DRUGS (6)
  1. GILENYA [Suspect]
     Indication: MULTIPLE SCLEROSIS
     Dosage: 0.5 MG, QD
     Route: 048
     Dates: start: 20120111
  2. TRAZODONE [Concomitant]
     Indication: SLEEP DISORDER
     Dosage: 50 MG, QHS
     Route: 048
  3. TRAZODONE [Concomitant]
     Indication: AFFECTIVE DISORDER
  4. GABAPENTIN [Concomitant]
     Indication: NEUROPATHY PERIPHERAL
     Dosage: 300 MG, PRN
     Route: 048
  5. BACLOFEN [Concomitant]
     Indication: MUSCLE SPASMS
     Dosage: 20 MG, TID
     Route: 048
  6. NUVIGIL [Concomitant]
     Indication: FATIGUE
     Dosage: 150 MG, PRN
     Route: 048

REACTIONS (1)
  - Weight increased [Recovering/Resolving]
